FAERS Safety Report 24453556 (Version 2)
Quarter: 2024Q4

REPORT INFORMATION
  Report Type: Report from Study
  Country: US (occurrence: US)
  Receive Date: 20241017
  Receipt Date: 20241018
  Transmission Date: 20250115
  Serious: No
  Sender: ROCHE
  Company Number: US-ROCHE-3361956

PATIENT
  Age: 59 Year
  Sex: Female
  Weight: 73.48 kg

DRUGS (3)
  1. RITUXAN [Suspect]
     Active Substance: RITUXIMAB
     Indication: Myasthenia gravis
     Dosage: INFUSE 1000MG INTRAVENOUSLY EVERY 4 MONTH(S) (2 CYCLES)
     Route: 042
  2. RITUXAN [Suspect]
     Active Substance: RITUXIMAB
     Indication: Multiple sclerosis
     Dosage: RECEIVES ONE DOSE AND TWO WEEKS LATER A SECOND DOSE THEN REPEATED EVERY 5 MONTHS
     Route: 042
     Dates: start: 201904
  3. SOLU-MEDROL [Concomitant]
     Active Substance: METHYLPREDNISOLONE SODIUM SUCCINATE

REACTIONS (5)
  - Off label use [Unknown]
  - Typical aura without headache [Unknown]
  - Pelvic pain [Unknown]
  - Urinary retention [Unknown]
  - Pollakiuria [Unknown]
